FAERS Safety Report 17974635 (Version 1)
Quarter: 2020Q3

REPORT INFORMATION
  Report Type: Spontaneous
  Country: US (occurrence: US)
  Receive Date: 20200702
  Receipt Date: 20200702
  Transmission Date: 20201103
  Serious: No
  Sender: FDA-Public Use
  Company Number: US-MISSION PHARMACAL COMPANY-2086987

PATIENT
  Age: 65 Year
  Sex: Female

DRUGS (5)
  1. LITHOSTAT [Suspect]
     Active Substance: ACETOHYDROXAMIC ACID
     Indication: NEPHROLITHIASIS
     Route: 048
     Dates: end: 20200612
  2. GABAPENTIN. [Concomitant]
     Active Substance: GABAPENTIN
  3. BACLOFEN. [Concomitant]
     Active Substance: BACLOFEN
  4. PROBIOTIC [Concomitant]
     Active Substance: PROBIOTICS NOS
  5. CYMBALTA [Concomitant]
     Active Substance: DULOXETINE HYDROCHLORIDE

REACTIONS (1)
  - Diarrhoea [Recovering/Resolving]
